FAERS Safety Report 5520744-8 (Version None)
Quarter: 2007Q4

REPORT INFORMATION
  Report Type: 
  Country: None (occurrence: None)
  Receive Date: 20071115
  Receipt Date: 20071115
  Transmission Date: 20080405
  Serious: Yes (Life-Threatening, Hospitalization, Other)
  Sender: FDA-Public Use
  Company Number: None

PATIENT
  Age: 1 Month
  Sex: Male
  Weight: 0.4536 kg

DRUGS (1)
  1. BAXA TPN COMPOUNDER [Suspect]

REACTIONS (1)
  - OVERDOSE [None]
